FAERS Safety Report 17765298 (Version 2)
Quarter: 2020Q4

REPORT INFORMATION
  Report Type: Spontaneous
  Country: US (occurrence: US)
  Receive Date: 20200511
  Receipt Date: 20201123
  Transmission Date: 20210113
  Serious: No
  Sender: FDA-Public Use
  Company Number: US-PFIZER INC-2020186438

PATIENT
  Age: 79 Year
  Sex: Female

DRUGS (2)
  1. LORBRENA [Suspect]
     Active Substance: LORLATINIB
     Indication: LUNG NEOPLASM MALIGNANT
     Dosage: 25 MG, UNK
  2. LORBRENA [Suspect]
     Active Substance: LORLATINIB
     Dosage: 125 MG

REACTIONS (1)
  - Off label use [Unknown]
